FAERS Safety Report 22264188 (Version 1)
Quarter: 2023Q2

REPORT INFORMATION
  Report Type: Spontaneous
  Country: AU (occurrence: AU)
  Receive Date: 20230428
  Receipt Date: 20230428
  Transmission Date: 20230722
  Serious: Yes (Death, Life-Threatening, Hospitalization)
  Sender: FDA-Public Use
  Company Number: AU-drreddys-LIT/AUS/23/0164280

PATIENT
  Age: 2 Year
  Sex: Female

DRUGS (3)
  1. LEVETIRACETAM [Suspect]
     Active Substance: LEVETIRACETAM
     Indication: Epilepsy
  2. PHENOBARBITAL [Suspect]
     Active Substance: PHENOBARBITAL
     Indication: Epilepsy
     Dosage: ON DAY 3 OF ADMISSION
  3. VALPROATE SODIUM [Suspect]
     Active Substance: VALPROATE SODIUM
     Indication: Epilepsy
     Dosage: ON DAY 9 OF ADMISSION

REACTIONS (7)
  - Death [Fatal]
  - Sepsis [Recovering/Resolving]
  - Drug reaction with eosinophilia and systemic symptoms [Recovering/Resolving]
  - Pneumonia haemophilus [Recovering/Resolving]
  - Metapneumovirus pneumonia [Recovering/Resolving]
  - Staphylococcal infection [Recovering/Resolving]
  - Product use issue [Unknown]
